FAERS Safety Report 4702528-3 (Version None)
Quarter: 2005Q2

REPORT INFORMATION
  Report Type: 
  Country: None (occurrence: None)
  Receive Date: 20050623
  Receipt Date: 20050610
  Transmission Date: 20051028
  Serious: Yes (Other)
  Sender: FDA-Public Use
  Company Number: B0384190A

PATIENT
  Age: 37 Year
  Sex: Female

DRUGS (5)
  1. REQUIP [Suspect]
     Dosage: SEE DOSAGE TEXT
  2. PRAMIPEXOLE                     (PRAMIPEXOLE) [Suspect]
     Dosage: TWICE PER DAY
  3. LEVODOPA [Concomitant]
  4. SELEGILINE HCL [Concomitant]
  5. QUETIAPINE FUMARATE [Concomitant]

REACTIONS (6)
  - AGITATION [None]
  - DYSKINESIA [None]
  - JEALOUS DELUSION [None]
  - MANIA [None]
  - PARANOIA [None]
  - TREMOR [None]
